FAERS Safety Report 19961117 (Version 12)
Quarter: 2022Q4

REPORT INFORMATION
  Report Type: Report from Study
  Country: CN (occurrence: CN)
  Receive Date: 20211016
  Receipt Date: 20221219
  Transmission Date: 20230113
  Serious: Yes (Other)
  Sender: FDA-Public Use
  Company Number: CN-NOVARTISPH-NVSC2021CN232470

PATIENT
  Age: 49 Year
  Sex: Male

DRUGS (14)
  1. PAZOPANIB [Suspect]
     Active Substance: PAZOPANIB
     Indication: Metastatic renal cell carcinoma
     Dosage: 800 MG
     Route: 048
     Dates: start: 20210322, end: 20211113
  2. DENOSUMAB [Concomitant]
     Active Substance: DENOSUMAB
     Indication: Prophylaxis
     Dosage: 120 MG
     Route: 058
     Dates: start: 20210331, end: 20210331
  3. DENOSUMAB [Concomitant]
     Active Substance: DENOSUMAB
     Dosage: 120 MG
     Route: 058
     Dates: start: 20210424, end: 20210424
  4. DENOSUMAB [Concomitant]
     Active Substance: DENOSUMAB
     Dosage: 120 MG
     Route: 058
     Dates: start: 20210701, end: 20210701
  5. DENOSUMAB [Concomitant]
     Active Substance: DENOSUMAB
     Dosage: 120 MG
     Route: 058
     Dates: start: 20210730, end: 20210730
  6. DENOSUMAB [Concomitant]
     Active Substance: DENOSUMAB
     Dosage: 120 MG
     Route: 058
     Dates: start: 20210903, end: 20210903
  7. DENOSUMAB [Concomitant]
     Active Substance: DENOSUMAB
     Dosage: 120 MG
     Route: 058
     Dates: start: 20210529, end: 20210529
  8. DENOSUMAB [Concomitant]
     Active Substance: DENOSUMAB
     Dosage: 120 MG
     Route: 058
     Dates: start: 20211123, end: 20211123
  9. LENTINAN [Concomitant]
     Active Substance: LENTINAN
     Indication: Immunodeficiency
     Dosage: 1 ML
     Route: 042
     Dates: start: 20210701, end: 20210701
  10. LENTINAN [Concomitant]
     Active Substance: LENTINAN
     Dosage: 1 ML
     Route: 042
     Dates: start: 20210903, end: 20210903
  11. LENTINAN [Concomitant]
     Active Substance: LENTINAN
     Dosage: 1 ML
     Route: 042
     Dates: start: 20210423, end: 20210423
  12. LENTINAN [Concomitant]
     Active Substance: LENTINAN
     Dosage: 1 ML
     Route: 065
     Dates: start: 20210529, end: 20210529
  13. LEVOTHYROXINE SODIUM [Concomitant]
     Active Substance: LEVOTHYROXINE SODIUM
     Indication: Product used for unknown indication
     Dosage: 4 DOSAGE FORM, QD (3/4 TABLETS/DAY UG)
     Route: 048
  14. VALSARTAN [Concomitant]
     Active Substance: VALSARTAN
     Indication: Product used for unknown indication
     Dosage: 1 DOSAGE FORM, QD (1 CAPSULES/DAY MG)
     Route: 048

REACTIONS (19)
  - Hypokalaemia [Recovered/Resolved]
  - Hypokalaemia [Not Recovered/Not Resolved]
  - Hypothyroidism [Not Recovered/Not Resolved]
  - Blood thyroid stimulating hormone increased [Not Recovered/Not Resolved]
  - Hypoproteinaemia [Recovered/Resolved]
  - Hypoproteinaemia [Not Recovered/Not Resolved]
  - Hypercholesterolaemia [Recovered/Resolved]
  - Hypertriglyceridaemia [Not Recovered/Not Resolved]
  - Pain in extremity [Recovered/Resolved]
  - Hypoalbuminaemia [Unknown]
  - Aspartate aminotransferase increased [Recovered/Resolved]
  - Hypertension [Not Recovered/Not Resolved]
  - Diarrhoea [Not Recovered/Not Resolved]
  - Alanine aminotransferase increased [Recovered/Resolved]
  - Hypocalcaemia [Recovered/Resolved]
  - Hypocalcaemia [Not Recovered/Not Resolved]
  - Muscle spasms [Recovered/Resolved]
  - Hypoglycaemia [Not Recovered/Not Resolved]
  - Blood creatinine increased [Not Recovered/Not Resolved]

NARRATIVE: CASE EVENT DATE: 20210331
